FAERS Safety Report 5082211-8 (Version None)
Quarter: 2006Q3

REPORT INFORMATION
  Report Type: 
  Country: None (occurrence: None)
  Receive Date: 20060815
  Receipt Date: 20060815
  Transmission Date: 20061208
  Serious: Yes (Hospitalization)
  Sender: FDA-Public Use
  Company Number: None

PATIENT
  Age: 66 Year
  Sex: Male
  Weight: 69.9 kg

DRUGS (8)
  1. LISINOPRIL [Suspect]
     Dosage: 5MG QD BY MOUTH
     Route: 048
     Dates: start: 20060221, end: 20060223
  2. MULTI-VITAMIN [Concomitant]
  3. ASPIRIN [Concomitant]
  4. LEVOTHYROXINE SODIUM [Concomitant]
  5. VIAGRA [Concomitant]
  6. IBUPROFEN [Concomitant]
  7. INSULIN,GLARGINE,HUMAN [Concomitant]
  8. GABAPENTIN [Concomitant]

REACTIONS (5)
  - ANGIONEUROTIC OEDEMA [None]
  - DYSPNOEA [None]
  - PRURITUS [None]
  - RASH [None]
  - SWELLING [None]
